FAERS Safety Report 4842739-X (Version None)
Quarter: 2005Q4

REPORT INFORMATION
  Report Type: 
  Country: None (occurrence: None)
  Receive Date: 20051201
  Receipt Date: 20050811
  Transmission Date: 20060501
  Serious: Yes (Life-Threatening, Hospitalization, Disabling, Other)
  Sender: FDA-Public Use
  Company Number: US-MERCK-0508USA02131

PATIENT
  Age: 54 Year
  Sex: Female

DRUGS (3)
  1. SINGULAIR [Suspect]
     Indication: HYPERSENSITIVITY
     Route: 048
     Dates: start: 20050201, end: 20050601
  2. SINGULAIR [Suspect]
     Indication: RHINITIS ALLERGIC
     Route: 048
     Dates: start: 20050201, end: 20050601
  3. CORTICOSTEROIDS (UNSPECIFIED) [Concomitant]
     Route: 048

REACTIONS (5)
  - ALLERGIC GRANULOMATOUS ANGIITIS [None]
  - ANAEMIA [None]
  - CONSTIPATION [None]
  - PNEUMONIA [None]
  - VISUAL FIELD DEFECT [None]
